FAERS Safety Report 8030332-X (Version None)
Quarter: 2011Q4

REPORT INFORMATION
  Report Type: 
  Country: None (occurrence: None)
  Receive Date: 20111130
  Receipt Date: 20110525
  Transmission Date: 20120403
  Serious: Yes (Other)
  Sender: FDA-Public Use
  Company Number: US200812001390

PATIENT
  Age: 70 Year
  Sex: Female
  Weight: 90.7 kg

DRUGS (9)
  1. EXENATIDE 5MCG PEN, DISPOSABLE DEVICE (EXENATIDE PEN (5MCG)) PEN,DISPO [Concomitant]
  2. OMEPRAZOLE [Concomitant]
  3. CAPTOPRIL [Concomitant]
  4. ASPIRIN [Concomitant]
  5. BYETTA [Suspect]
     Dosage: 5 UG, 2/D
     Dates: start: 20080825, end: 20080925
  6. METFORMIN HCL [Concomitant]
  7. GLIPIZIDE [Concomitant]
  8. LOVASTATIN [Concomitant]
  9. AVANDIA [Concomitant]

REACTIONS (10)
  - NAUSEA [None]
  - LABORATORY TEST ABNORMAL [None]
  - ASTHENIA [None]
  - DECREASED APPETITE [None]
  - PANCREATITIS [None]
  - HYPERHIDROSIS [None]
  - ABDOMINAL PAIN [None]
  - WEIGHT DECREASED [None]
  - VOMITING [None]
  - MALAISE [None]
